FAERS Safety Report 21404445 (Version 1)
Quarter: 2022Q4

REPORT INFORMATION
  Report Type: Spontaneous
  Country: CN (occurrence: CN)
  Receive Date: 20221003
  Receipt Date: 20221003
  Transmission Date: 20230112
  Serious: Yes (Other)
  Sender: FDA-Public Use
  Company Number: CN-BAYER-2022A134423

PATIENT
  Age: 53 Year
  Sex: Male

DRUGS (1)
  1. GLUCOBAY [Suspect]
     Active Substance: ACARBOSE
     Indication: Diabetes mellitus
     Dosage: 50 MG, TID
     Route: 048
     Dates: start: 20220522, end: 20220829

REACTIONS (4)
  - Blood creatinine increased [Recovering/Resolving]
  - Contraindicated product administered [None]
  - Labelled drug-disease interaction medication error [None]
  - Contraindicated product prescribed [None]

NARRATIVE: CASE EVENT DATE: 20220522
